FAERS Safety Report 8620866-9 (Version None)
Quarter: 2012Q3

REPORT INFORMATION
  Report Type: 
  Country: None (occurrence: None)
  Receive Date: 20120820
  Receipt Date: 20120820
  Transmission Date: 20120928
  Serious: Yes (Hospitalization)
  Sender: FDA-Public Use
  Company Number: None

PATIENT
  Age: 64 Year
  Sex: Male
  Weight: 93 kg

DRUGS (12)
  1. TRAZODONE HCL [Concomitant]
  2. ACETAMINOPHEN [Concomitant]
  3. LACTOBACILLUS ACIDOPHILUS [Concomitant]
  4. DIVALPROEX SODIUM [Suspect]
     Indication: AGGRESSION
     Dosage: 500 MG, BID, PO
     Route: 048
     Dates: start: 20110516, end: 20120806
  5. DIVALPROEX SODIUM [Suspect]
     Indication: DEPRESSION
     Dosage: 500 MG, BID, PO
     Route: 048
     Dates: start: 20110516, end: 20120806
  6. DIVALPROEX SODIUM [Suspect]
     Indication: ANXIETY
     Dosage: 500 MG, BID, PO
     Route: 048
     Dates: start: 20110516, end: 20120806
  7. VITAMIN D [Concomitant]
  8. CALCIUM [Concomitant]
  9. FERROUS SULFATE TAB [Concomitant]
  10. FOLIC ACID [Concomitant]
  11. GABAPENTIN [Concomitant]
  12. GALANTAMINE HYDROBROMIDE ER [Concomitant]

REACTIONS (3)
  - AGGRESSION [None]
  - AMMONIA INCREASED [None]
  - MENTAL STATUS CHANGES [None]
